FAERS Safety Report 12421174 (Version 1)
Quarter: 2016Q2

REPORT INFORMATION
  Report Type: Spontaneous
  Country: BR (occurrence: BR)
  Receive Date: 20160531
  Receipt Date: 20160531
  Transmission Date: 20160815
  Serious: Yes (Other)
  Sender: FDA-Public Use
  Company Number: BR-JNJFOC-20160527476

PATIENT
  Age: 62 Year
  Sex: Female

DRUGS (2)
  1. RISPERIDONE. [Suspect]
     Active Substance: RISPERIDONE
     Indication: POOR QUALITY SLEEP
     Route: 065
  2. ALPRAZOLAM. [Concomitant]
     Active Substance: ALPRAZOLAM
     Indication: POOR QUALITY SLEEP
     Route: 065

REACTIONS (5)
  - Product use issue [Unknown]
  - Chikungunya virus infection [Unknown]
  - Drug ineffective for unapproved indication [Unknown]
  - Flavivirus infection [Unknown]
  - Off label use [Unknown]

NARRATIVE: CASE EVENT DATE: 20160320
